FAERS Safety Report 6400996-2 (Version None)
Quarter: 2009Q4

REPORT INFORMATION
  Report Type: 
  Country: None (occurrence: None)
  Receive Date: 20091013
  Receipt Date: 20091013
  Transmission Date: 20100525
  Serious: Yes (Hospitalization)
  Sender: FDA-Public Use
  Company Number: None

PATIENT
  Age: 4 Year
  Sex: Female
  Weight: 19.1 kg

DRUGS (3)
  1. MYOZYME [Suspect]
     Indication: GLYCOGEN STORAGE DISEASE TYPE II
     Dosage: 400 MG EVERY 2 WEEKS
     Dates: start: 20060629
  2. DIPHENHYDRAMINE HCL [Concomitant]
  3. ACETAMINOPHEN [Concomitant]

REACTIONS (2)
  - RASH GENERALISED [None]
  - SWELLING FACE [None]
